FAERS Safety Report 6874745-8 (Version None)
Quarter: 2010Q3

REPORT INFORMATION
  Report Type: 
  Country: None (occurrence: None)
  Receive Date: 20100723
  Receipt Date: 20100719
  Transmission Date: 20110219
  Serious: Yes (Hospitalization)
  Sender: FDA-Public Use
  Company Number: 2010MA000875

PATIENT
  Age: 77 Year
  Sex: Female

DRUGS (5)
  1. DILTIAZEM HYDROCHLORIDE [Suspect]
     Indication: CARDIAC DISORDER
     Dosage: 180 MG; QD; PO
     Route: 048
     Dates: start: 20080101, end: 20100410
  2. EFFIENT [Concomitant]
  3. DIGOXIN [Concomitant]
  4. ZADATA [Concomitant]
  5. PREV MEDS [Concomitant]

REACTIONS (2)
  - DRUG INEFFECTIVE [None]
  - VENTRICULAR TACHYCARDIA [None]
